FAERS Safety Report 13304193 (Version 1)
Quarter: 2017Q1

REPORT INFORMATION
  Report Type: Report from Study
  Country: PT (occurrence: PT)
  Receive Date: 20170308
  Receipt Date: 20170308
  Transmission Date: 20170428
  Serious: Yes (Other)
  Sender: FDA-Public Use
  Company Number: PT-ROCHE-1900040

PATIENT
  Age: 64 Year
  Sex: Female
  Weight: 46 kg

DRUGS (5)
  1. PERJETA [Suspect]
     Active Substance: PERTUZUMAB
     Indication: HER-2 POSITIVE BREAST CANCER
     Route: 042
     Dates: start: 20150609, end: 20160114
  2. DOCETAXEL. [Suspect]
     Active Substance: DOCETAXEL
     Indication: HER-2 POSITIVE BREAST CANCER
     Dosage: 102.8 - 140 MG
     Route: 042
     Dates: start: 20150318, end: 20151111
  3. HERCEPTIN [Suspect]
     Active Substance: TRASTUZUMAB
     Indication: HER-2 POSITIVE BREAST CANCER
     Route: 058
     Dates: start: 20160817
  4. LETROZOLE. [Suspect]
     Active Substance: LETROZOLE
     Indication: HER-2 POSITIVE BREAST CANCER
     Route: 065
  5. HERCEPTIN [Suspect]
     Active Substance: TRASTUZUMAB
     Indication: HER-2 POSITIVE BREAST CANCER
     Dosage: 249-276 MG
     Route: 042
     Dates: start: 20150317, end: 20160114

REACTIONS (3)
  - Off label use [Unknown]
  - Cardiac disorder [Recovered/Resolved]
  - Ejection fraction decreased [Unknown]

NARRATIVE: CASE EVENT DATE: 20160125
